FAERS Safety Report 25996703 (Version 1)
Quarter: 2025Q4

REPORT INFORMATION
  Report Type: Other
  Country: US (occurrence: US)
  Receive Date: 20251104
  Receipt Date: 20251104
  Transmission Date: 20260118
  Serious: No
  Sender: SIGMA TAU
  Company Number: US-LEADIANT BIOSCIENCES, INC.-2025LBI000313

PATIENT
  Sex: Female

DRUGS (1)
  1. CYSTARAN [Suspect]
     Active Substance: CYSTEAMINE HYDROCHLORIDE
     Indication: Cystinosis
     Dosage: ADMINISTER ONE DROP INTO EACH EYE 8 TIMES A DAY
     Route: 047
     Dates: start: 20220830

REACTIONS (2)
  - Vision blurred [Unknown]
  - Photophobia [Unknown]
